FAERS Safety Report 7743155-3 (Version None)
Quarter: 2011Q3

REPORT INFORMATION
  Report Type: 
  Country: None (occurrence: None)
  Receive Date: 20110912
  Receipt Date: 20110903
  Transmission Date: 20111222
  Serious: Yes (Hospitalization)
  Sender: FDA-Public Use
  Company Number: IR-ROCHE-800964

PATIENT
  Age: 70 Year
  Sex: Male

DRUGS (2)
  1. ELOXATIN [Concomitant]
     Indication: COLON CANCER
     Dates: start: 20110101
  2. AVASTIN [Suspect]
     Indication: COLON CANCER
     Route: 065
     Dates: start: 20110101

REACTIONS (1)
  - PSEUDOMEMBRANOUS COLITIS [None]
